FAERS Safety Report 20824678 (Version 1)
Quarter: 2022Q2

REPORT INFORMATION
  Report Type: Spontaneous
  Country: US (occurrence: US)
  Receive Date: 20220513
  Receipt Date: 20220513
  Transmission Date: 20220720
  Serious: No
  Sender: FDA-Public Use
  Company Number: US-CELGENE-USA-20220102040

PATIENT
  Age: 86 Year
  Sex: Male

DRUGS (1)
  1. REVLIMID [Suspect]
     Active Substance: LENALIDOMIDE
     Indication: Plasma cell myeloma
     Dosage: 25 MILLIGRAM
     Route: 048
     Dates: start: 20211004

REACTIONS (7)
  - Fatigue [Unknown]
  - Arthralgia [Unknown]
  - Asthenia [Unknown]
  - Oedema peripheral [Unknown]
  - Product dose omission in error [Unknown]
  - Peripheral swelling [Unknown]
  - Dizziness [Unknown]
